FAERS Safety Report 9384784 (Version 2)
Quarter: 2013Q3

REPORT INFORMATION
  Report Type: Spontaneous
  Country: JP (occurrence: JP)
  Receive Date: 20130705
  Receipt Date: 20130916
  Transmission Date: 20140515
  Serious: Yes (Life-Threatening, Disabling)
  Sender: FDA-Public Use
  Company Number: JP-ELI_LILLY_AND_COMPANY-JP201306008142

PATIENT
  Age: 73 Year
  Sex: Female
  Weight: 38.2 kg

DRUGS (3)
  1. GEMZAR [Suspect]
     Indication: MALIGNANT NEOPLASM OF AMPULLA OF VATER
     Dosage: 1200 MG, UNK
     Route: 042
     Dates: start: 20111020, end: 20130521
  2. RINDERON [Concomitant]
     Indication: PROPHYLAXIS
     Dosage: 2 MG, UNK
     Route: 048
     Dates: start: 20111020
  3. PRIMPERAN [Concomitant]
     Indication: PROPHYLAXIS OF NAUSEA AND VOMITING
     Dosage: 5 MG, UNK
     Route: 048
     Dates: start: 20111020

REACTIONS (2)
  - Haemolytic uraemic syndrome [Recovered/Resolved]
  - Off label use [Unknown]
